FAERS Safety Report 5958560-5 (Version None)
Quarter: 2008Q4

REPORT INFORMATION
  Report Type: 
  Country: None (occurrence: None)
  Receive Date: 20081119
  Receipt Date: 20081107
  Transmission Date: 20090506
  Serious: Yes (Disabling, Other)
  Sender: FDA-Public Use
  Company Number: AU-PFIZER INC-2008077897

PATIENT
  Sex: Male
  Weight: 68 kg

DRUGS (9)
  1. SUTENT [Suspect]
     Indication: METASTATIC RENAL CELL CARCINOMA
     Route: 048
     Dates: start: 20070901
  2. COVERSYL [Concomitant]
     Route: 048
  3. CARDIZEM [Concomitant]
     Route: 048
  4. PRAVACHOL [Concomitant]
     Route: 048
  5. OMEPRAZOLE [Concomitant]
     Route: 048
  6. TRAMADOL HCL [Concomitant]
     Route: 048
  7. NU-LAX [Concomitant]
     Route: 048
  8. NORMISON [Concomitant]
     Route: 048
  9. ASPIRIN [Concomitant]
     Route: 048

REACTIONS (24)
  - AGEUSIA [None]
  - ALOPECIA [None]
  - ARTHRALGIA [None]
  - ASTHENIA [None]
  - BALANCE DISORDER [None]
  - DIARRHOEA [None]
  - DRY MOUTH [None]
  - DYSGEUSIA [None]
  - EPISTAXIS [None]
  - ERYTHEMA [None]
  - FAECAL INCONTINENCE [None]
  - FLATULENCE [None]
  - GASTROOESOPHAGEAL REFLUX DISEASE [None]
  - GINGIVAL BLEEDING [None]
  - GINGIVITIS [None]
  - GLOSSODYNIA [None]
  - HEADACHE [None]
  - HYPERTENSION [None]
  - HYPOTHYROIDISM [None]
  - LACRIMATION INCREASED [None]
  - MYALGIA [None]
  - NAUSEA [None]
  - SKIN FRAGILITY [None]
  - SLEEP DISORDER [None]
